FAERS Safety Report 24694283 (Version 1)
Quarter: 2024Q4

REPORT INFORMATION
  Report Type: Spontaneous
  Country: US (occurrence: US)
  Receive Date: 20241204
  Receipt Date: 20241204
  Transmission Date: 20250115
  Serious: No
  Sender: Steriscience PTE
  Company Number: US-STERISCIENCE B.V.-2024-ST-001351

PATIENT
  Age: 31 Year
  Sex: Female
  Weight: 99 kg

DRUGS (7)
  1. BUPIVACAINE [Suspect]
     Active Substance: BUPIVACAINE
     Indication: Spinal anaesthesia
     Dosage: 1.2 MILLILITER
     Route: 037
  2. ONDANSETRON [Suspect]
     Active Substance: ONDANSETRON
     Indication: Prophylaxis of nausea and vomiting
     Dosage: 4 MILLIGRAM
     Route: 065
  3. METOCLOPRAMIDE [Suspect]
     Active Substance: METOCLOPRAMIDE
     Indication: Prophylaxis of nausea and vomiting
     Dosage: 10 MILLIGRAM
     Route: 065
  4. DEXAMETHASONE [Suspect]
     Active Substance: DEXAMETHASONE
     Indication: Analgesic therapy
     Dosage: 4 MILLIGRAM
     Route: 037
  5. DEXMEDETOMIDINE [Suspect]
     Active Substance: DEXMEDETOMIDINE
     Indication: Analgesic therapy
     Dosage: 10 MICROGRAM
     Route: 037
  6. EPHEDRINE [Suspect]
     Active Substance: EPHEDRINE
     Indication: Prophylaxis
     Dosage: 10 MILLIGRAM
     Route: 065
  7. EPHEDRINE [Suspect]
     Active Substance: EPHEDRINE
     Indication: Hypotension

REACTIONS (2)
  - Off label use [Unknown]
  - Maternal exposure during delivery [Unknown]
